FAERS Safety Report 8299806-0 (Version None)
Quarter: 2012Q2

REPORT INFORMATION
  Report Type: 
  Country: None (occurrence: None)
  Receive Date: 20120419
  Receipt Date: 20120419
  Transmission Date: 20120825
  Serious: Yes (Other)
  Sender: FDA-Public Use
  Company Number: None

PATIENT
  Age: 87 Year
  Sex: Male
  Weight: 81.646 kg

DRUGS (3)
  1. METOPROLOL TARTRATE [Concomitant]
  2. PRADAXA [Suspect]
     Indication: ATRIAL FLUTTER
     Dosage: 150 MG
     Route: 048
     Dates: start: 20120301, end: 20120304
  3. AMIODARONE HCL [Concomitant]

REACTIONS (5)
  - GASTROINTESTINAL HAEMORRHAGE [None]
  - DISORIENTATION [None]
  - ANAEMIA [None]
  - MALAISE [None]
  - ABDOMINAL DISCOMFORT [None]
